FAERS Safety Report 12705539 (Version 2)
Quarter: 2019Q1

REPORT INFORMATION
  Report Type: Spontaneous
  Country: CA (occurrence: CA)
  Receive Date: 20160901
  Receipt Date: 20190128
  Transmission Date: 20190417
  Serious: Yes (Other)
  Sender: FDA-Public Use
  Company Number: CA-ORION CORPORATION ORION PHARMA-TREX2016-1520

PATIENT
  Age: 44 Year
  Sex: Female

DRUGS (16)
  1. ENBREL [Suspect]
     Active Substance: ETANERCEPT
     Indication: RHEUMATOID ARTHRITIS
     Dosage: 2 TIMES A WEEK
     Route: 058
     Dates: start: 200502, end: 200512
  2. PLAQUENIL [Concomitant]
     Active Substance: HYDROXYCHLOROQUINE SULFATE
     Indication: RHEUMATOID ARTHRITIS
     Route: 065
     Dates: start: 2004
  3. RITUXAN [Concomitant]
     Active Substance: RITUXIMAB
     Indication: RHEUMATOID ARTHRITIS
     Dosage: 1000 MG 2 PERFUSION
     Route: 042
     Dates: start: 200802
  4. PREDNISONE. [Concomitant]
     Active Substance: PREDNISONE
     Route: 065
  5. LEFLUNOMIDE. [Suspect]
     Active Substance: LEFLUNOMIDE
     Indication: RHEUMATOID ARTHRITIS
     Route: 065
     Dates: start: 200206, end: 200410
  6. HUMIRA [Suspect]
     Active Substance: ADALIMUMAB
     Dosage: CYCLIC
     Route: 065
     Dates: start: 2016, end: 2016
  7. METHOTREXATE SODIUM. [Concomitant]
     Active Substance: METHOTREXATE SODIUM
     Route: 065
  8. HUMIRA [Suspect]
     Active Substance: ADALIMUMAB
     Route: 058
     Dates: start: 200909, end: 20160126
  9. HUMIRA [Suspect]
     Active Substance: ADALIMUMAB
     Indication: RHEUMATOID ARTHRITIS
     Route: 058
     Dates: start: 200510, end: 2007
  10. HUMIRA [Suspect]
     Active Substance: ADALIMUMAB
     Dosage: CYCLIC
     Route: 065
  11. HUMIRA [Suspect]
     Active Substance: ADALIMUMAB
     Route: 058
  12. HYDROXYCHLOROQUINE [Concomitant]
     Active Substance: HYDROXYCHLOROQUINE
     Route: 065
  13. ENBREL [Suspect]
     Active Substance: ETANERCEPT
     Route: 058
  14. METHOTREXATE (TRADE NAME UNKNOWN) [Suspect]
     Active Substance: METHOTREXATE
     Route: 048
     Dates: start: 200410
  15. METHOTREXATE (TRADE NAME UNKNOWN) [Suspect]
     Active Substance: METHOTREXATE
     Route: 058
     Dates: start: 200410
  16. ORENCIA [Suspect]
     Active Substance: ABATACEPT
     Indication: RHEUMATOID ARTHRITIS
     Route: 065
     Dates: start: 200811, end: 200908

REACTIONS (5)
  - Treatment failure [Not Recovered/Not Resolved]
  - Foot deformity [Not Recovered/Not Resolved]
  - Contraindicated product administered [Not Recovered/Not Resolved]
  - Drug ineffective [Not Recovered/Not Resolved]
  - Gait disturbance [Not Recovered/Not Resolved]
